FAERS Safety Report 4620945-7 (Version None)
Quarter: 2005Q1

REPORT INFORMATION
  Report Type: 
  Country: None (occurrence: None)
  Receive Date: 20050325
  Receipt Date: 20050308
  Transmission Date: 20050727
  Serious: Yes (Hospitalization)
  Sender: FDA-Public Use
  Company Number: F01200500390

PATIENT
  Age: 67 Year
  Sex: Female

DRUGS (11)
  1. OXALIPLATIN - SOLUTION - 60 MG/M2 [Suspect]
     Indication: BILE DUCT CANCER
     Route: 042
     Dates: start: 20041203, end: 20041203
  2. GEMCITABINE - SOLUTION - 1000 MG/M2 [Suspect]
     Route: 042
     Dates: start: 20041203, end: 20041203
  3. CAPECITABINE - TABLET - 1250 MG/M2 [Suspect]
     Dosage: 1250 MG/M2 BID FOR 7 DAYS
     Route: 048
     Dates: start: 20041203
  4. RAMIPRIL [Concomitant]
  5. FERRODURETTER (FERROUS SULFATE) [Concomitant]
  6. SPIRON (SPIRONOLACTONE) [Concomitant]
  7. PAMOL (PARACETAMOL) [Concomitant]
  8. LAKTULOSE (LACTULOSE) [Concomitant]
  9. PROPAL RETARD (PROPRANOLOL) [Concomitant]
  10. DOLOL (TRAMADOL) [Concomitant]
  11. HALOPERIDOL [Concomitant]

REACTIONS (6)
  - AMNESIA [None]
  - BLOOD GLUCOSE INCREASED [None]
  - COMA HEPATIC [None]
  - CONFUSIONAL STATE [None]
  - HEPATIC FUNCTION ABNORMAL [None]
  - INFECTION [None]
